FAERS Safety Report 13019362 (Version 2)
Quarter: 2016Q4

REPORT INFORMATION
  Report Type: Spontaneous
  Country: GB (occurrence: GB)
  Receive Date: 20161212
  Receipt Date: 20161215
  Transmission Date: 20170207
  Serious: Yes (Death, Hospitalization)
  Sender: FDA-Public Use
  Company Number: GB-PFIZER INC-3259894

PATIENT
  Age: 72 Year
  Sex: Male
  Weight: 140 kg

DRUGS (19)
  1. GENTAMICIN SULFATE. [Suspect]
     Active Substance: GENTAMICIN SULFATE
     Dosage: UNK
     Dates: start: 20160314, end: 20160322
  2. GENTAMICIN SULFATE. [Suspect]
     Active Substance: GENTAMICIN SULFATE
     Indication: ENDOCARDITIS
     Dosage: UNK
     Dates: start: 20160303, end: 20160310
  3. TEICOPLANIN [Suspect]
     Active Substance: TEICOPLANIN
     Dosage: 800 MG, UNK
     Route: 042
     Dates: start: 20160311, end: 20160314
  4. METFORMIN HYDROCHLORIDE. [Concomitant]
     Active Substance: METFORMIN HYDROCHLORIDE
     Dosage: UNK
  5. ISOSORBIDE MONONITRATE. [Concomitant]
     Active Substance: ISOSORBIDE MONONITRATE
     Dosage: UNK
  6. RAMIPRIL. [Concomitant]
     Active Substance: RAMIPRIL
     Dosage: UNK
  7. ACARBOSE. [Concomitant]
     Active Substance: ACARBOSE
     Dosage: UNK
  8. CLONIDINE. [Concomitant]
     Active Substance: CLONIDINE
     Dosage: UNK
  9. CLOPIDOGREL [Concomitant]
     Active Substance: CLOPIDOGREL BISULFATE
     Dosage: UNK
  10. VANCOMYCIN HCL [Suspect]
     Active Substance: VANCOMYCIN HYDROCHLORIDE
     Indication: ENDOCARDITIS
     Dosage: UNK
     Dates: start: 20160303, end: 20160309
  11. TEICOPLANIN [Suspect]
     Active Substance: TEICOPLANIN
     Indication: ENDOCARDITIS
     Dosage: 1200 MG, FREQ: 3 DAY; INTERVAL: 1.
     Route: 042
     Dates: start: 20160309, end: 20160311
  12. DILTIAZEM HYDROCHLORIDE. [Concomitant]
     Active Substance: DILTIAZEM HYDROCHLORIDE
     Dosage: UNK
  13. TEICOPLANIN [Suspect]
     Active Substance: TEICOPLANIN
     Dosage: 800 MG, UNK
     Route: 042
     Dates: start: 20160324, end: 20160404
  14. AMITRIPTYLINE [Concomitant]
     Active Substance: AMITRIPTYLINE
     Dosage: UNK
  15. SIMVASTATIN. [Concomitant]
     Active Substance: SIMVASTATIN
     Dosage: UNK
  16. VANCOMYCIN HCL [Suspect]
     Active Substance: VANCOMYCIN HYDROCHLORIDE
     Dosage: UNK
     Dates: start: 20160314, end: 20160404
  17. CO-AMOXICLAV /00756801/ [Concomitant]
     Active Substance: AMOXICILLIN\CLAVULANIC ACID
     Dosage: UNK
  18. GLICLAZIDE [Concomitant]
     Active Substance: GLICLAZIDE
     Dosage: UNK
  19. OMEPRAZOLE. [Concomitant]
     Active Substance: OMEPRAZOLE
     Dosage: UNK

REACTIONS (18)
  - Hypertension [Unknown]
  - Tachycardia [Unknown]
  - Brain injury [Unknown]
  - Nausea [Unknown]
  - Chills [Unknown]
  - Cardiac arrest [Unknown]
  - Antibiotic level above therapeutic [Unknown]
  - Diabetes mellitus inadequate control [Unknown]
  - Renal impairment [Unknown]
  - Vomiting [Unknown]
  - Hypersensitivity [Fatal]
  - Seizure [Unknown]
  - C-reactive protein increased [Unknown]
  - Lethargy [Unknown]
  - Dyspnoea [Unknown]
  - White blood cell count increased [Unknown]
  - Mast cell degranulation present [Unknown]
  - Respiratory arrest [Unknown]

NARRATIVE: CASE EVENT DATE: 20160312
